FAERS Safety Report 9769846 (Version 1)
Quarter: 2013Q4

REPORT INFORMATION
  Report Type: Spontaneous
  Country: US (occurrence: US)
  Receive Date: 20131218
  Receipt Date: 20131218
  Transmission Date: 20140711
  Serious: No
  Sender: FDA-Public Use
  Company Number: US-BAYER-2013-149864

PATIENT
  Age: 48 Year
  Sex: Male
  Weight: 140.59 kg

DRUGS (2)
  1. ALEVE CAPLET [Suspect]
     Route: 048
  2. BAYER EXTRA STRENGTH BACK + BODY PAIN [Suspect]
     Indication: SCIATICA
     Dosage: 3 DF, Q4HR
     Route: 048
     Dates: start: 201311

REACTIONS (4)
  - Drug ineffective [None]
  - Extra dose administered [None]
  - Off label use [None]
  - Incorrect drug administration duration [None]
